FAERS Safety Report 21734507 (Version 5)
Quarter: 2023Q2

REPORT INFORMATION
  Report Type: Spontaneous
  Country: US (occurrence: US)
  Receive Date: 20221215
  Receipt Date: 20230526
  Transmission Date: 20230722
  Serious: No
  Sender: FDA-Public Use
  Company Number: US-PFIZER INC-202201368956

PATIENT
  Age: 75 Year
  Sex: Female
  Weight: 98.88 kg

DRUGS (2)
  1. IBRANCE [Suspect]
     Active Substance: PALBOCICLIB
     Indication: Breast cancer metastatic
     Dosage: 100 MG, CYCLIC (ONCE DAILY FOR 21 DAYS, THEN OFF FOR 7 DAYS)
     Dates: start: 2019
  2. FULVESTRANT [Concomitant]
     Active Substance: FULVESTRANT
     Indication: Antioestrogen therapy
     Dosage: 25 MG (BY INJECTION ONCE A MONTH)

REACTIONS (3)
  - Dermatitis [Not Recovered/Not Resolved]
  - Staphylococcal infection [Unknown]
  - Rash [Not Recovered/Not Resolved]
